FAERS Safety Report 18919196 (Version 1)
Quarter: 2021Q1

REPORT INFORMATION
  Report Type: Spontaneous
  Country: DE (occurrence: DE)
  Receive Date: 20210220
  Receipt Date: 20210220
  Transmission Date: 20210420
  Serious: Yes (Hospitalization, Other)
  Sender: FDA-Public Use
  Company Number: NVSC2021DE031473

PATIENT
  Sex: Male

DRUGS (10)
  1. CORTISONE [Suspect]
     Active Substance: CORTISONE
     Dosage: 10 MG (PHASING OUT)
     Route: 065
  2. CALCIUM [Concomitant]
     Active Substance: CALCIUM
     Indication: PRODUCT USED FOR UNKNOWN INDICATION
     Dosage: UNK
     Route: 065
  3. METHOTREXATE. [Suspect]
     Active Substance: METHOTREXATE
     Indication: PRODUCT USED FOR UNKNOWN INDICATION
     Dosage: UNK
     Route: 065
  4. CORTISONE [Suspect]
     Active Substance: CORTISONE
     Indication: TRAUMATIC LUNG INJURY
     Dosage: 100 MG
     Route: 065
  5. CORTISONE [Suspect]
     Active Substance: CORTISONE
     Dosage: 20 MG(PHASING OUT)
     Route: 065
  6. CORTISONE [Suspect]
     Active Substance: CORTISONE
     Dosage: 75 MG (TAPERED OFF )
     Route: 065
  7. ROACTEMRA [Suspect]
     Active Substance: TOCILIZUMAB
     Indication: GIANT CELL ARTERITIS
     Dosage: 162 MG, QW
     Route: 058
     Dates: start: 20190807, end: 20201201
  8. COTRIM FORTE [Concomitant]
     Active Substance: SULFAMETHOXAZOLE\TRIMETHOPRIM
     Indication: PRODUCT USED FOR UNKNOWN INDICATION
     Dosage: UNK 0.5 WEEK
     Route: 065
  9. CORTISONE [Suspect]
     Active Substance: CORTISONE
     Dosage: 10 MG
     Route: 065
  10. CORTISONE [Suspect]
     Active Substance: CORTISONE
     Dosage: 125 MG
     Route: 065

REACTIONS (11)
  - Headache [Recovered/Resolved]
  - Eye swelling [Not Recovered/Not Resolved]
  - Diarrhoea [Recovered/Resolved]
  - Intestinal perforation [Recovered/Resolved]
  - Diverticulitis [Recovered/Resolved]
  - Dyspepsia [Recovered/Resolved]
  - Traumatic lung injury [Recovered/Resolved]
  - Insomnia [Recovered/Resolved]
  - Abdominal discomfort [Recovered/Resolved]
  - Visual impairment [Not Recovered/Not Resolved]
  - Weight increased [Not Recovered/Not Resolved]

NARRATIVE: CASE EVENT DATE: 20190807
